FAERS Safety Report 24588483 (Version 2)
Quarter: 2024Q4

REPORT INFORMATION
  Report Type: Spontaneous
  Country: DE (occurrence: DE)
  Receive Date: 20241107
  Receipt Date: 20241128
  Transmission Date: 20250115
  Serious: Yes (Hospitalization, Other)
  Sender: SANDOZ
  Company Number: DE-BRISTOL-MYERS SQUIBB COMPANY-2024-160406

PATIENT
  Age: 75 Year
  Sex: Male
  Weight: 79 kg

DRUGS (5)
  1. FLUOROURACIL [Suspect]
     Active Substance: FLUOROURACIL
     Indication: Gastric cancer
     Dosage: FREQUENCY: 14 DAYSUNK
     Route: 065
     Dates: start: 20220926
  2. OXALIPLATIN [Suspect]
     Active Substance: OXALIPLATIN
     Indication: Gastric cancer
     Dosage: FREQUENCY: 14 DAYS
     Route: 042
     Dates: start: 20220926
  3. OPDIVO [Suspect]
     Active Substance: NIVOLUMAB
     Indication: Gastric cancer
     Dosage: FREQUENCY: 14 DAYS
     Route: 042
     Dates: start: 20220926
  4. TRIFLURIDINE [Suspect]
     Active Substance: TRIFLURIDINE
     Indication: Gastric cancer
     Dosage: FREQUENCY: 28 DAYS
     Route: 048
     Dates: start: 20240513
  5. ONDANSETRON [Concomitant]
     Active Substance: ONDANSETRON
     Indication: Prophylaxis
     Dosage: 4.000MG QD
     Route: 048
     Dates: start: 20230612, end: 20230731

REACTIONS (4)
  - Metastases to liver [Unknown]
  - Nausea [Recovered/Resolved]
  - Weight decreased [Unknown]
  - Decreased appetite [Unknown]

NARRATIVE: CASE EVENT DATE: 20240705
